FAERS Safety Report 20010926 (Version 1)
Quarter: 2021Q4

REPORT INFORMATION
  Report Type: Spontaneous
  Country: US (occurrence: US)
  Receive Date: 20211029
  Receipt Date: 20211029
  Transmission Date: 20220303
  Serious: Yes (Other)
  Sender: FDA-Public Use
  Company Number: None

PATIENT
  Age: 38 Year
  Sex: Male

DRUGS (2)
  1. IMDEVIMAB [Suspect]
     Active Substance: IMDEVIMAB
     Indication: COVID-19
     Dosage: ?          OTHER FREQUENCY:ONCE;
     Route: 041
     Dates: start: 20211027, end: 20211027
  2. CASIRIVIMAB [Suspect]
     Active Substance: CASIRIVIMAB
     Indication: COVID-19
     Dosage: ?          OTHER FREQUENCY:ONCE;
     Route: 041
     Dates: start: 20211027, end: 20211027

REACTIONS (8)
  - Dizziness [None]
  - Infusion related reaction [None]
  - Hyperhidrosis [None]
  - Presyncope [None]
  - Fall [None]
  - Loss of consciousness [None]
  - Seizure [None]
  - Blood pressure increased [None]

NARRATIVE: CASE EVENT DATE: 20211027
